FAERS Safety Report 17494066 (Version 1)
Quarter: 2020Q1

REPORT INFORMATION
  Report Type: Spontaneous
  Country: US (occurrence: US)
  Receive Date: 20200304
  Receipt Date: 20200304
  Transmission Date: 20200409
  Serious: Yes (Death, Hospitalization)
  Sender: FDA-Public Use
  Company Number: US-TEVA-2020-US-1193375

PATIENT
  Age: 77 Year
  Sex: Male

DRUGS (3)
  1. VENLAFAXINE [Suspect]
     Active Substance: VENLAFAXINE HYDROCHLORIDE
     Indication: INTENTIONAL OVERDOSE
  2. VENLAFAXINE [Suspect]
     Active Substance: VENLAFAXINE HYDROCHLORIDE
     Indication: COMPLETED SUICIDE
     Dosage: INGESTED A BOTTLE OF VENLAFAXINE (150MG EXTENDED RELEASE)
     Route: 048
  3. SODIUM BICARBONATE. [Suspect]
     Active Substance: SODIUM BICARBONATE
     Route: 065

REACTIONS (7)
  - Toxicity to various agents [Fatal]
  - Completed suicide [Fatal]
  - Cardiac arrest [Fatal]
  - Status epilepticus [Fatal]
  - Intentional overdose [Fatal]
  - Drug ineffective [Unknown]
  - Shock [Fatal]
